FAERS Safety Report 20551830 (Version 3)
Quarter: 2022Q2

REPORT INFORMATION
  Report Type: Report from Study
  Country: AR (occurrence: AR)
  Receive Date: 20220304
  Receipt Date: 20220406
  Transmission Date: 20220721
  Serious: Yes (Other)
  Sender: FDA-Public Use
  Company Number: AR-NOVARTISPH-NVSC2022AR048743

PATIENT
  Age: 70 Year
  Sex: Male

DRUGS (3)
  1. COSENTYX [Suspect]
     Active Substance: SECUKINUMAB
     Indication: Psoriasis
     Dosage: 300 MG, QMO
     Route: 058
     Dates: start: 20211228
  2. COSENTYX [Suspect]
     Active Substance: SECUKINUMAB
     Indication: Psoriatic arthropathy
  3. ACITRETIN [Concomitant]
     Active Substance: ACITRETIN
     Indication: Product used for unknown indication
     Dosage: 25 MG, QD
     Route: 065
     Dates: start: 2019

REACTIONS (9)
  - Cataract [Unknown]
  - Type 2 diabetes mellitus [Unknown]
  - Rheumatic disorder [Unknown]
  - Pain in extremity [Unknown]
  - Arthralgia [Unknown]
  - Overweight [Unknown]
  - Ligament sprain [Unknown]
  - Hypertension [Unknown]
  - Bone erosion [Unknown]

NARRATIVE: CASE EVENT DATE: 20220322
